FAERS Safety Report 20957422 (Version 1)
Quarter: 2022Q2

REPORT INFORMATION
  Report Type: Spontaneous
  Country: BR (occurrence: BR)
  Receive Date: 20220614
  Receipt Date: 20220614
  Transmission Date: 20220721
  Serious: Yes (Other)
  Sender: FDA-Public Use
  Company Number: BR-BAYER-2022P004730

PATIENT
  Age: 76 Year
  Sex: Female

DRUGS (2)
  1. EYLEA [Suspect]
     Active Substance: AFLIBERCEPT
     Indication: Diabetic retinal oedema
     Dosage: (TOTAL OF 2  INJECTIONS); SOLUTION FOR INJECTION
     Route: 031
  2. EYLEA [Suspect]
     Active Substance: AFLIBERCEPT
     Dosage: (LAST INJECTION); SOLUTION FOR INJECTION
     Route: 031
     Dates: start: 20220526, end: 20220526

REACTIONS (5)
  - Vitreous opacities [Unknown]
  - Eye pain [Unknown]
  - Ocular hyperaemia [Unknown]
  - Endophthalmitis [Unknown]
  - Multiple use of single-use product [Unknown]

NARRATIVE: CASE EVENT DATE: 20220526
